FAERS Safety Report 7002429-4 (Version None)
Quarter: 2010Q3

REPORT INFORMATION
  Report Type: 
  Country: None (occurrence: None)
  Receive Date: 20100920
  Receipt Date: 20100910
  Transmission Date: 20110219
  Serious: Yes (Other)
  Sender: FDA-Public Use
  Company Number: BE-ASTRAZENECA-2010SE41674

PATIENT
  Age: 17202 Day
  Sex: Male
  Weight: 80 kg

DRUGS (3)
  1. CRESTOR [Suspect]
     Indication: DYSLIPIDAEMIA
     Route: 048
     Dates: start: 20100603, end: 20100902
  2. ASPIRIN [Concomitant]
  3. ANTICALCIUM [Concomitant]
     Indication: RAYNAUD'S PHENOMENON

REACTIONS (1)
  - BLOOD TRIGLYCERIDES INCREASED [None]
